FAERS Safety Report 14920891 (Version 1)
Quarter: 2018Q2

REPORT INFORMATION
  Report Type: Report from Study
  Country: ET (occurrence: ET)
  Receive Date: 20180521
  Receipt Date: 20180521
  Transmission Date: 20180711
  Serious: Yes (Death, Hospitalization, Other)
  Sender: FDA-Public Use
  Company Number: ET-GILEAD-2017-0306152

PATIENT

DRUGS (10)
  1. RIFAMPICIN [Concomitant]
     Active Substance: RIFAMPIN
  2. PYRIDOXINE [Concomitant]
     Active Substance: PYRIDOXINE
  3. TRIMETHOPRIM. [Concomitant]
     Active Substance: TRIMETHOPRIM
  4. ISONIAZID. [Concomitant]
     Active Substance: ISONIAZID
  5. PYRAZINAMIDE. [Concomitant]
     Active Substance: PYRAZINAMIDE
  6. ETHAMBUTOL [Concomitant]
     Active Substance: ETHAMBUTOL HYDROCHLORIDE
  7. LAMIVUDINE. [Concomitant]
     Active Substance: LAMIVUDINE
  8. EFAVIRENZ. [Concomitant]
     Active Substance: EFAVIRENZ
  9. SULFAMETHOXAZOLE [Concomitant]
     Active Substance: SULFAMETHOXAZOLE
  10. TENOFOVIR DISOPROXIL FUMARATE. [Suspect]
     Active Substance: TENOFOVIR DISOPROXIL FUMARATE
     Indication: PRODUCT USED FOR UNKNOWN INDICATION
     Dosage: UNK
     Route: 065

REACTIONS (1)
  - Acute kidney injury [Fatal]
